FAERS Safety Report 9787836 (Version 1)
Quarter: 2013Q4

REPORT INFORMATION
  Report Type: Spontaneous
  Country: US (occurrence: US)
  Receive Date: 20131230
  Receipt Date: 20131230
  Transmission Date: 20140711
  Serious: Yes (Hospitalization)
  Sender: FDA-Public Use
  Company Number: US-PFIZER INC-2013366763

PATIENT
  Age: 65 Year
  Sex: Male

DRUGS (1)
  1. SUTENT [Suspect]
     Indication: RENAL CANCER
     Dosage: 50 MG, CYCLIC (DAILY 4 WKS ON 2 WKS OFF)
     Route: 048
     Dates: start: 20110419

REACTIONS (3)
  - Haemorrhage [Unknown]
  - Blister [Unknown]
  - Dysgeusia [Unknown]
